FAERS Safety Report 6441081-3 (Version None)
Quarter: 2009Q4

REPORT INFORMATION
  Report Type: 
  Country: None (occurrence: None)
  Receive Date: 20091102
  Receipt Date: 20071128
  Transmission Date: 20100525
  Serious: Yes (Disabling)
  Sender: FDA-Public Use
  Company Number: CART-10503

PATIENT
  Age: 25 Year
  Sex: Male
  Weight: 104.5 kg

DRUGS (1)
  1. CARTICEL [Suspect]
     Indication: JOINT INJURY
     Dosage: 1 NA, ONCE, INTRA-ARTICULAR
     Route: 014
     Dates: start: 20070129, end: 20070129

REACTIONS (3)
  - GRAFT COMPLICATION [None]
  - LOOSE BODY IN JOINT [None]
  - SYNOVITIS [None]
